FAERS Safety Report 19945271 (Version 2)
Quarter: 2021Q4

REPORT INFORMATION
  Report Type: Spontaneous
  Country: US (occurrence: US)
  Receive Date: 20211012
  Receipt Date: 20211018
  Transmission Date: 20220303
  Serious: No
  Sender: FDA-Public Use
  Company Number: US-SANOFI-00802789

PATIENT
  Age: 73 Year
  Sex: Female

DRUGS (1)
  1. TOUJEO MAX [Suspect]
     Active Substance: INSULIN GLARGINE
     Indication: Type 2 diabetes mellitus
     Dosage: 14 IU, QD
     Route: 065
     Dates: start: 20210902

REACTIONS (4)
  - Illness [Recovering/Resolving]
  - Blood glucose fluctuation [Recovering/Resolving]
  - Incorrect dose administered by device [Recovering/Resolving]
  - Device issue [Recovering/Resolving]

NARRATIVE: CASE EVENT DATE: 20211004
